FAERS Safety Report 19752741 (Version 1)
Quarter: 2021Q3

REPORT INFORMATION
  Report Type: Spontaneous
  Country: VE (occurrence: VE)
  Receive Date: 20210827
  Receipt Date: 20210827
  Transmission Date: 20211014
  Serious: Yes (Hospitalization, Other)
  Sender: FDA-Public Use
  Company Number: NVSC2021VE160051

PATIENT
  Sex: Male

DRUGS (1)
  1. GLIVEC [Suspect]
     Active Substance: IMATINIB MESYLATE
     Indication: CHRONIC MYELOID LEUKAEMIA
     Dosage: 400 MG (4X100 MG TABLETS)
     Route: 065

REACTIONS (7)
  - COVID-19 [Unknown]
  - COVID-19 pneumonia [Unknown]
  - Seizure [Unknown]
  - Anosmia [Unknown]
  - Oxygen saturation decreased [Unknown]
  - Ageusia [Unknown]
  - Pyrexia [Unknown]
